FAERS Safety Report 7011849-3 (Version None)
Quarter: 2010Q3

REPORT INFORMATION
  Report Type: 
  Country: None (occurrence: None)
  Receive Date: 20100924
  Receipt Date: 20100916
  Transmission Date: 20110219
  Serious: Yes (Other)
  Sender: FDA-Public Use
  Company Number: GB-ASTRAZENECA-2010SE43745

PATIENT
  Age: 85 Year
  Sex: Female

DRUGS (7)
  1. OMEPRAZOLE [Suspect]
  2. MELOXICAM [Concomitant]
     Indication: OSTEOARTHRITIS
  3. RAMIPRIL [Concomitant]
  4. ISOSORBIDE MONONITRATE [Concomitant]
  5. ASPIRIN [Concomitant]
  6. BENDROFLUMETHIAZIDE [Concomitant]
  7. HYDROXYCHLOROQUINE [Concomitant]

REACTIONS (1)
  - CUTANEOUS LUPUS ERYTHEMATOSUS [None]
